FAERS Safety Report 5868668-0 (Version None)
Quarter: 2008Q3

REPORT INFORMATION
  Report Type: 
  Country: None (occurrence: None)
  Receive Date: 20080903
  Receipt Date: 20080826
  Transmission Date: 20090109
  Serious: Yes (Hospitalization, Other)
  Sender: FDA-Public Use
  Company Number: PHHY2008GB17822

PATIENT
  Sex: Female

DRUGS (1)
  1. ACLASTA [Suspect]

REACTIONS (4)
  - BIOPSY BONE [None]
  - BONE LESION [None]
  - METASTATIC NEOPLASM [None]
  - OSTEONECROSIS [None]
